FAERS Safety Report 9771856 (Version 1)
Quarter: 2013Q4

REPORT INFORMATION
  Report Type: Spontaneous
  Country: BR (occurrence: BR)
  Receive Date: 20131219
  Receipt Date: 20131219
  Transmission Date: 20140711
  Serious: Yes (Death, Other)
  Sender: FDA-Public Use
  Company Number: BR-JNJFOC-20131205634

PATIENT
  Age: 25 Year
  Sex: Female

DRUGS (2)
  1. INVEGA SUSTENNA [Suspect]
     Indication: SCHIZOPHRENIA
     Route: 030
     Dates: start: 20131129
  2. INVEGA SUSTENNA [Suspect]
     Indication: SCHIZOPHRENIA
     Dosage: IN THE MORNING
     Route: 030
     Dates: start: 20131206

REACTIONS (6)
  - Completed suicide [Fatal]
  - Schizophrenia [Unknown]
  - Injection site pain [Unknown]
  - Fear of injection [Unknown]
  - Nervousness [Unknown]
  - Malaise [Unknown]
